FAERS Safety Report 24592132 (Version 4)
Quarter: 2025Q1

REPORT INFORMATION
  Report Type: Report from Study
  Country: US (occurrence: US)
  Receive Date: 20241108
  Receipt Date: 20250224
  Transmission Date: 20250409
  Serious: Yes (Life-Threatening, Hospitalization, Other)
  Sender: NOVARTIS
  Company Number: US-002147023-NVSC2024US215519

PATIENT
  Sex: Female

DRUGS (5)
  1. KESIMPTA [Suspect]
     Active Substance: OFATUMUMAB
     Indication: Multiple sclerosis
     Route: 065
     Dates: start: 20240317
  2. KESIMPTA [Suspect]
     Active Substance: OFATUMUMAB
     Dosage: UNK, Q4W (EVERY 28 DAYS)
     Route: 058
     Dates: start: 202403
  3. KESIMPTA [Suspect]
     Active Substance: OFATUMUMAB
     Route: 065
     Dates: start: 20240922
  4. KESIMPTA [Suspect]
     Active Substance: OFATUMUMAB
     Route: 065
  5. KESIMPTA [Suspect]
     Active Substance: OFATUMUMAB
     Dosage: UNK, Q4W (EVERY 28 DAYS)
     Route: 058
     Dates: end: 20241010

REACTIONS (16)
  - Urinary tract infection [Recovering/Resolving]
  - Cardiac infection [Recovering/Resolving]
  - Cardiac failure [Recovering/Resolving]
  - Dysphonia [Recovering/Resolving]
  - Pyelonephritis [Unknown]
  - Hypervolaemia [Unknown]
  - Ejection fraction decreased [Unknown]
  - Hypotension [Unknown]
  - Tachycardia [Unknown]
  - Myocarditis [Unknown]
  - Decreased immune responsiveness [Unknown]
  - Tachyarrhythmia [Unknown]
  - Cardiogenic shock [Unknown]
  - Sepsis [Unknown]
  - Cardiomyopathy [Unknown]
  - Atrial fibrillation [Unknown]

NARRATIVE: CASE EVENT DATE: 20241010
